FAERS Safety Report 25332277 (Version 1)
Quarter: 2025Q2

REPORT INFORMATION
  Report Type: Spontaneous
  Country: US (occurrence: None)
  Receive Date: 20250519
  Receipt Date: 20250519
  Transmission Date: 20250717
  Serious: Yes (Disabling)
  Sender: FDA-CTU
  Company Number: None

PATIENT
  Age: 59 Year
  Sex: Female
  Weight: 61.65 kg

DRUGS (8)
  1. LEQVIO [Suspect]
     Active Substance: INCLISIRAN SODIUM
     Indication: Blood cholesterol abnormal
     Route: 030
  2. MONTELUKAST [Concomitant]
     Active Substance: MONTELUKAST
  3. DICLOFENAC [Concomitant]
     Active Substance: DICLOFENAC
  4. BRIMONIDINE TARTRATE\TIMOLOL MALEATE [Concomitant]
     Active Substance: BRIMONIDINE TARTRATE\TIMOLOL MALEATE
  5. BACLOFEN [Concomitant]
     Active Substance: BACLOFEN
  6. TIZANIDINE [Concomitant]
     Active Substance: TIZANIDINE
  7. AMLODIPINE [Concomitant]
     Active Substance: AMLODIPINE BESYLATE
  8. padaday [Concomitant]

REACTIONS (3)
  - Haemorrhagic stroke [None]
  - Arrhythmia [None]
  - Hemiplegia [None]

NARRATIVE: CASE EVENT DATE: 20240404
